FAERS Safety Report 5089665-1 (Version None)
Quarter: 2006Q3

REPORT INFORMATION
  Report Type: 
  Country: None (occurrence: None)
  Receive Date: 20060731
  Receipt Date: 20051102
  Transmission Date: 20061208
  Serious: Yes (Hospitalization)
  Sender: FDA-Public Use
  Company Number: USA0511112617

PATIENT
  Age: 63 Year
  Sex: Female

DRUGS (6)
  1. FORTEO [Suspect]
     Indication: SPINAL FRACTURE
     Dates: start: 20050917
  2. LOTENSIN [Concomitant]
  3. LIPITOR [Concomitant]
  4. HYDROCHLOROTHIAZIDE [Concomitant]
  5. POTASSIUM [Concomitant]
  6. FORTEO [Concomitant]

REACTIONS (3)
  - BALANCE DISORDER [None]
  - HEADACHE [None]
  - VERTIGO [None]
